FAERS Safety Report 6447811-9 (Version None)
Quarter: 2009Q4

REPORT INFORMATION
  Report Type: 
  Country: None (occurrence: None)
  Receive Date: 20091120
  Receipt Date: 20090914
  Transmission Date: 20100525
  Serious: No
  Sender: FDA-Public Use
  Company Number: A0802299A

PATIENT
  Age: 57 Year
  Sex: Female

DRUGS (8)
  1. VERAMYST [Suspect]
     Dosage: 2SPR PER DAY
     Route: 045
     Dates: start: 20090814, end: 20090814
  2. INDAPAMIDE [Concomitant]
  3. UNKNOWN MEDICATION [Concomitant]
  4. MAGNESIUM [Concomitant]
  5. VITAMIN [Concomitant]
  6. NAPROXEN [Concomitant]
  7. KLOR-CON [Concomitant]
  8. CALCIUM [Concomitant]

REACTIONS (4)
  - DYSPNOEA [None]
  - NASAL OEDEMA [None]
  - SINUS DISORDER [None]
  - SINUS HEADACHE [None]
